FAERS Safety Report 12374118 (Version 1)
Quarter: 2016Q2

REPORT INFORMATION
  Report Type: Spontaneous
  Country: US (occurrence: None)
  Receive Date: 20160516
  Receipt Date: 20160516
  Transmission Date: 20160815
  Serious: Yes (Death)
  Sender: FDA-Public Use
  Company Number: None

PATIENT
  Age: 84 Year
  Sex: Male
  Weight: 85.2 kg

DRUGS (2)
  1. CASODEX [Suspect]
     Active Substance: BICALUTAMIDE
     Dates: end: 20160430
  2. LEUPROLODE ACETATE [Suspect]
     Active Substance: LEUPROLIDE ACETATE
     Dates: end: 20160212

REACTIONS (1)
  - Constipation [None]

NARRATIVE: CASE EVENT DATE: 20160501
